FAERS Safety Report 7320072-4 (Version None)
Quarter: 2011Q1

REPORT INFORMATION
  Report Type: 
  Country: None (occurrence: None)
  Receive Date: 20110228
  Receipt Date: 20110214
  Transmission Date: 20110831
  Serious: Yes (Hospitalization)
  Sender: FDA-Public Use
  Company Number: DE-ELI_LILLY_AND_COMPANY-DE201102003622

PATIENT
  Sex: Female

DRUGS (4)
  1. PEMETREXED [Suspect]
     Indication: NON-SMALL CELL LUNG CANCER
     Dosage: 825 MG, OTHER
     Route: 050
     Dates: start: 20100721
  2. VALPROATE SODIUM [Concomitant]
     Indication: EPILEPSY
     Dosage: 400 MG, UNK
     Dates: start: 20100817
  3. CISPLATIN [Suspect]
     Indication: NON-SMALL CELL LUNG CANCER
     Dosage: 124 MG, UNK
     Dates: start: 20100721
  4. NECITUMUMAB (11F8) (LY3012211) [Suspect]
     Indication: NON-SMALL CELL LUNG CANCER
     Dosage: 400 MG, OTHER
     Route: 042
     Dates: start: 20100721

REACTIONS (1)
  - CONVULSION [None]
